FAERS Safety Report 7745282-3 (Version None)
Quarter: 2011Q3

REPORT INFORMATION
  Report Type: 
  Country: None (occurrence: None)
  Receive Date: 20110908
  Receipt Date: 20110830
  Transmission Date: 20111222
  Serious: Yes (Hospitalization)
  Sender: FDA-Public Use
  Company Number: 11-000918

PATIENT
  Age: 88 Year
  Sex: Female
  Weight: 49.9 kg

DRUGS (13)
  1. OMEPRAZOLE [Concomitant]
  2. DIGOXIN [Concomitant]
  3. WARFARIN SODIUM [Suspect]
     Indication: ATRIAL FIBRILLATION
     Dosage: 7.5;2.5 MG, QD, 5 MG THREE TIMES A WEEK, ORAL
     Route: 048
     Dates: start: 20110513, end: 20110513
  4. WARFARIN SODIUM [Suspect]
     Indication: ATRIAL FIBRILLATION
     Dosage: 7.5;2.5 MG, QD, 5 MG THREE TIMES A WEEK, ORAL
     Route: 048
     Dates: start: 20110421, end: 20110512
  5. WARFARIN SODIUM [Suspect]
     Indication: ATRIAL FIBRILLATION
     Dosage: 7.5;2.5 MG, QD, 5 MG THREE TIMES A WEEK, ORAL
     Route: 048
     Dates: start: 20110520, end: 20110523
  6. WARFARIN SODIUM [Suspect]
     Indication: ATRIAL FIBRILLATION
     Dosage: 7.5;2.5 MG, QD, 5 MG THREE TIMES A WEEK, ORAL
     Route: 048
     Dates: start: 20110520
  7. MACRODANTIN [Suspect]
     Indication: URINARY TRACT INFECTION
     Dosage: 100 MG, BID, ORAL
     Route: 048
     Dates: start: 20110513, end: 20110514
  8. DILTIAZEM [Concomitant]
  9. POTASSIUM CHLORIDE [Concomitant]
  10. PHENAZOPYRIDINE HCL TAB [Suspect]
     Indication: URINARY TRACT INFECTION
     Dates: start: 20110513, end: 20110513
  11. SEPTRA DS [Concomitant]
  12. ATENOLOL [Concomitant]
  13. FUROSEMIDE [Concomitant]

REACTIONS (16)
  - VOMITING [None]
  - INTERNATIONAL NORMALISED RATIO INCREASED [None]
  - PRESYNCOPE [None]
  - INTERNATIONAL NORMALISED RATIO FLUCTUATION [None]
  - DYSPEPSIA [None]
  - PROTHROMBIN LEVEL INCREASED [None]
  - WEIGHT DECREASED [None]
  - ARRHYTHMIA [None]
  - ACTIVATED PARTIAL THROMBOPLASTIN TIME PROLONGED [None]
  - DECREASED APPETITE [None]
  - HYPONATRAEMIA [None]
  - ECCHYMOSIS [None]
  - ABDOMINAL DISCOMFORT [None]
  - URINARY TRACT INFECTION [None]
  - NAUSEA [None]
  - GAIT DISTURBANCE [None]
